FAERS Safety Report 18468846 (Version 1)
Quarter: 2020Q4

REPORT INFORMATION
  Report Type: Spontaneous
  Country: US (occurrence: US)
  Receive Date: 20201105
  Receipt Date: 20201105
  Transmission Date: 20210114
  Serious: Yes (Disabling)
  Sender: FDA-Public Use
  Company Number: None

PATIENT
  Sex: Female

DRUGS (1)
  1. AVEENO CLEAR COMPLEXION FOAMING CLEANSER [Suspect]
     Active Substance: SALICYLIC ACID
     Route: 061
     Dates: start: 20201029

REACTIONS (1)
  - Ulcer [None]

NARRATIVE: CASE EVENT DATE: 20201029
